FAERS Safety Report 12235073 (Version 5)
Quarter: 2017Q1

REPORT INFORMATION
  Report Type: Report from Study
  Country: US (occurrence: US)
  Receive Date: 20160404
  Receipt Date: 20170320
  Transmission Date: 20170428
  Serious: Yes (Hospitalization, Other)
  Sender: FDA-Public Use
  Company Number: US-ACTELION-A-US2016-132812

PATIENT
  Age: 53 Year
  Sex: Female
  Weight: 78.91 kg

DRUGS (8)
  1. TRACLEER [Suspect]
     Active Substance: BOSENTAN
     Dosage: 125 MG, BID
     Route: 048
  2. TRACLEER [Suspect]
     Active Substance: BOSENTAN
     Indication: PULMONARY ARTERIAL HYPERTENSION
     Dosage: 62.5 MG, BID
     Route: 048
     Dates: start: 20160222
  3. TRACLEER [Suspect]
     Active Substance: BOSENTAN
     Dosage: 62.5 MG, BID
     Route: 048
     Dates: start: 20151009
  4. VELETRI [Suspect]
     Active Substance: EPOPROSTENOL
     Dosage: 92 NG/KG, PER MIN
     Route: 042
  5. TRACLEER [Suspect]
     Active Substance: BOSENTAN
     Dosage: UNK
     Route: 048
     Dates: start: 200801
  6. VELETRI [Suspect]
     Active Substance: EPOPROSTENOL
     Dosage: 44.5 NG/KG, PER MIN
     Route: 042
     Dates: start: 20110221
  7. COUMADIN [Concomitant]
     Active Substance: WARFARIN SODIUM
  8. VELETRI [Suspect]
     Active Substance: EPOPROSTENOL
     Indication: PULMONARY ARTERIAL HYPERTENSION
     Dosage: 43 NG/KG, PER MIN
     Route: 042
     Dates: start: 20110221

REACTIONS (12)
  - Pain in extremity [Unknown]
  - Thyroid mass [Unknown]
  - Migraine [Recovering/Resolving]
  - Cough [Unknown]
  - Thyroidectomy [Unknown]
  - Pain [Unknown]
  - Choking [Unknown]
  - Pneumonia [Recovered/Resolved]
  - Hepatic enzyme increased [Unknown]
  - Headache [Unknown]
  - Influenza [Unknown]
  - Dyspnoea [Unknown]

NARRATIVE: CASE EVENT DATE: 20160321
